FAERS Safety Report 11434431 (Version 2)
Quarter: 2015Q3

REPORT INFORMATION
  Report Type: Spontaneous
  Country: US (occurrence: US)
  Receive Date: 20150831
  Receipt Date: 20150904
  Transmission Date: 20151125
  Serious: Yes (Other)
  Sender: FDA-Public Use
  Company Number: US-PFIZER INC-2015288278

PATIENT
  Age: 63 Year
  Sex: Female

DRUGS (1)
  1. PREMARIN [Suspect]
     Active Substance: ESTROGENS, CONJUGATED
     Dosage: UNK

REACTIONS (9)
  - Anxiety [Unknown]
  - Malaise [Unknown]
  - Dyskinesia [Unknown]
  - Insomnia [Unknown]
  - Escherichia infection [Unknown]
  - Hypertension [Unknown]
  - Tremor [Unknown]
  - Depression [Unknown]
  - Myocardial infarction [Unknown]

NARRATIVE: CASE EVENT DATE: 201504
